FAERS Safety Report 15618840 (Version 1)
Quarter: 2018Q4

REPORT INFORMATION
  Report Type: Spontaneous
  Country: US (occurrence: US)
  Receive Date: 20181114
  Receipt Date: 20181114
  Transmission Date: 20190205
  Serious: Yes (Hospitalization)
  Sender: FDA-Public Use
  Company Number: None

PATIENT
  Sex: Male

DRUGS (21)
  1. SUTENT [Suspect]
     Active Substance: SUNITINIB MALATE
     Indication: NEUROENDOCRINE TUMOUR
     Route: 048
     Dates: start: 20180525
  2. ZOFRAN [Concomitant]
     Active Substance: ONDANSETRON HYDROCHLORIDE
  3. DIGOXIN. [Concomitant]
     Active Substance: DIGOXIN
  4. IRON [Concomitant]
     Active Substance: IRON
  5. MORPHINE SUL [Concomitant]
     Active Substance: MORPHINE SULFATE
  6. PROCHLORPER [Concomitant]
  7. METOPROLOL. [Concomitant]
     Active Substance: METOPROLOL
  8. VITAMIN D3 [Concomitant]
     Active Substance: CHOLECALCIFEROL
  9. HUMALOG [Concomitant]
     Active Substance: INSULIN LISPRO
  10. OXYCODONE [Concomitant]
     Active Substance: OXYCODONE
  11. PANTOPRZOLE [Concomitant]
  12. PROBIOTIC [Concomitant]
     Active Substance: PROBIOTICS NOS
  13. SERTRALINE [Concomitant]
     Active Substance: SERTRALINE HYDROCHLORIDE
  14. ASPIRIN. [Concomitant]
     Active Substance: ASPIRIN
  15. MULTIVITAMIN [Concomitant]
     Active Substance: VITAMINS
  16. GABAPENTIN. [Concomitant]
     Active Substance: GABAPENTIN
  17. LANTUS [Concomitant]
     Active Substance: INSULIN GLARGINE
  18. MIDRODRINE [Concomitant]
  19. AMITRIPTYLINE [Concomitant]
     Active Substance: AMITRIPTYLINE
  20. ARIPRIPRAZOLE [Concomitant]
     Active Substance: ARIPIPRAZOLE
  21. RANITIDINE. [Concomitant]
     Active Substance: RANITIDINE

REACTIONS (4)
  - Weight decreased [None]
  - Disorientation [None]
  - Hypophagia [None]
  - Fluid intake reduced [None]
